FAERS Safety Report 7133963-4 (Version None)
Quarter: 2010Q4

REPORT INFORMATION
  Report Type: 
  Country: None (occurrence: None)
  Receive Date: 20101203
  Receipt Date: 20101123
  Transmission Date: 20110411
  Serious: Yes (Hospitalization, Other)
  Sender: FDA-Public Use
  Company Number: US-JNJFOC-20101108175

PATIENT
  Sex: Male
  Weight: 68.95 kg

DRUGS (9)
  1. DURAGESIC-100 [Suspect]
     Indication: PAIN
     Route: 062
  2. FENTANYL-100 [Suspect]
     Indication: PAIN
     Route: 062
  3. FENTANYL-100 [Suspect]
     Route: 062
  4. CLONAZEPAM [Concomitant]
     Indication: ILL-DEFINED DISORDER
     Route: 048
  5. AMBIEN [Concomitant]
     Indication: SLEEP DISORDER
     Route: 048
  6. CYCLOBENAZPRINE [Concomitant]
     Indication: ILL-DEFINED DISORDER
     Route: 048
  7. CYMBALTA [Concomitant]
     Indication: DEPRESSION
     Route: 048
  8. LEXAPRO [Concomitant]
     Indication: DEPRESSION
     Route: 048
  9. MARIJUANA [Concomitant]
     Indication: ILL-DEFINED DISORDER
     Route: 065

REACTIONS (16)
  - ASTHENIA [None]
  - ASTHMA [None]
  - CONFUSIONAL STATE [None]
  - CONSTIPATION [None]
  - CSF CELL COUNT INCREASED [None]
  - DRUG EFFECT DECREASED [None]
  - FALL [None]
  - HAEMORRHOIDS [None]
  - HOSPITALISATION [None]
  - INTRACRANIAL HYPOTENSION [None]
  - RASH [None]
  - SKULL FRACTURE [None]
  - SLEEP APNOEA SYNDROME [None]
  - THERAPEUTIC RESPONSE DELAYED [None]
  - WEIGHT DECREASED [None]
  - WEIGHT INCREASED [None]
